FAERS Safety Report 7634329-0 (Version None)
Quarter: 2011Q3

REPORT INFORMATION
  Report Type: 
  Country: None (occurrence: None)
  Receive Date: 20110725
  Receipt Date: 20100923
  Transmission Date: 20111222
  Serious: No
  Sender: FDA-Public Use
  Company Number: US-MYLANLABS-2010S1017627

PATIENT
  Age: 60 Year
  Sex: Female

DRUGS (9)
  1. TOPROL-XL [Concomitant]
  2. INFLUENZA VACCINE [Suspect]
     Indication: ANTIVIRAL PROPHYLAXIS
     Route: 030
  3. ESTRADIOL [Concomitant]
     Indication: HYSTERECTOMY
  4. POTASSIUM [Concomitant]
  5. SYNTHROID [Concomitant]
     Indication: HYPOTHYROIDISM
  6. NEXIUM [Concomitant]
  7. BUSPIRONE HCL [Suspect]
     Indication: ANXIETY
     Route: 048
     Dates: start: 20100917
  8. NASONEX [Concomitant]
  9. ZYRTEC [Concomitant]

REACTIONS (2)
  - DECREASED APPETITE [None]
  - ABDOMINAL PAIN [None]
